FAERS Safety Report 21421673 (Version 1)
Quarter: 2022Q4

REPORT INFORMATION
  Report Type: Spontaneous
  Country: US (occurrence: US)
  Receive Date: 20221007
  Receipt Date: 20221007
  Transmission Date: 20230113
  Serious: No
  Sender: FDA-Public Use
  Company Number: US-BRISTOL-MYERS SQUIBB COMPANY-2022-116561

PATIENT
  Age: 37 Year
  Sex: Female

DRUGS (1)
  1. THALOMID [Suspect]
     Active Substance: THALIDOMIDE
     Indication: Aphthous ulcer
     Route: 048
     Dates: start: 20170617

REACTIONS (3)
  - Paraesthesia [Unknown]
  - Muscle spasms [Unknown]
  - Intentional product use issue [Unknown]
